FAERS Safety Report 6417561-3 (Version None)
Quarter: 2009Q4

REPORT INFORMATION
  Report Type: 
  Country: None (occurrence: None)
  Receive Date: 20091023
  Receipt Date: 20091013
  Transmission Date: 20100525
  Serious: Yes (Other)
  Sender: FDA-Public Use
  Company Number: ADR36252009

PATIENT
  Age: 52 Year
  Sex: Female

DRUGS (3)
  1. SIMVASTATIN [Suspect]
     Indication: HYPERCHOLESTEROLAEMIA
     Dosage: 40MG, ORAL
     Route: 048
     Dates: start: 20070118, end: 20070328
  2. SIMVASTATIN [Suspect]
     Indication: TYPE 2 DIABETES MELLITUS
     Dosage: 40MG, ORAL
     Route: 048
     Dates: start: 20070118, end: 20070328
  3. METFORMIN HCL [Concomitant]

REACTIONS (2)
  - ERYTHEMA NODOSUM [None]
  - PAIN [None]
